FAERS Safety Report 4978834-4 (Version None)
Quarter: 2006Q2

REPORT INFORMATION
  Report Type: 
  Country: None (occurrence: None)
  Receive Date: 20060417
  Receipt Date: 20060403
  Transmission Date: 20061013
  Serious: Yes (Hospitalization)
  Sender: FDA-Public Use
  Company Number: 2006RR-01914

PATIENT
  Age: 2 Year
  Sex: Male

DRUGS (1)
  1. ACETAMINOPHEN [Suspect]
     Indication: PYREXIA

REACTIONS (5)
  - CONVULSION [None]
  - CRYING [None]
  - DELIRIUM [None]
  - ELECTROENCEPHALOGRAM ABNORMAL [None]
  - INFLUENZA [None]
